FAERS Safety Report 5758958-4 (Version None)
Quarter: 2008Q2

REPORT INFORMATION
  Report Type: 
  Country: None (occurrence: None)
  Receive Date: 20080604
  Receipt Date: 20080529
  Transmission Date: 20081010
  Serious: Yes (Other)
  Sender: FDA-Public Use
  Company Number: SG-ASTRAZENECA-2008AP04123

PATIENT
  Sex: Male
  Weight: 62 kg

DRUGS (9)
  1. CRESTOR [Suspect]
     Indication: LIPIDS INCREASED
     Route: 048
     Dates: start: 20030801, end: 20080429
  2. HYZAAR FORTE [Concomitant]
     Indication: BLOOD PRESSURE INCREASED
     Route: 048
  3. CARDIPRIN [Concomitant]
     Indication: MYOCARDIAL ISCHAEMIA
     Route: 048
  4. LISDENE [Concomitant]
     Indication: BLOOD PRESSURE INCREASED
     Route: 048
  5. ZIMOR [Concomitant]
     Indication: MYOCARDIAL ISCHAEMIA
     Route: 048
  6. CARTIGEN [Concomitant]
     Indication: OSTEOARTHRITIS
     Route: 048
  7. NEUROFORTE [Concomitant]
     Indication: SPONDYLITIS
     Route: 048
  8. ARCOXIA [Concomitant]
     Indication: OSTEOARTHRITIS
  9. VYTORIN [Concomitant]
     Dosage: 10/20 MG
     Dates: start: 20071201, end: 20080201

REACTIONS (2)
  - BLOOD CREATINE PHOSPHOKINASE INCREASED [None]
  - MUSCLE SPASMS [None]
